FAERS Safety Report 22376682 (Version 1)
Quarter: 2023Q2

REPORT INFORMATION
  Report Type: Spontaneous
  Country: US (occurrence: US)
  Receive Date: 20230528
  Receipt Date: 20230528
  Transmission Date: 20230722
  Serious: Yes (Other)
  Sender: FDA-Public Use
  Company Number: US-SA-SAC20230526000284

PATIENT
  Sex: Male

DRUGS (11)
  1. AUBAGIO [Suspect]
     Active Substance: TERIFLUNOMIDE
     Indication: Multiple sclerosis
     Dosage: 14 MG, QD
     Route: 048
     Dates: start: 20200408
  2. LINZESS [Concomitant]
     Active Substance: LINACLOTIDE
     Dosage: UNK
  3. RIZATRIPTAN [Concomitant]
     Active Substance: RIZATRIPTAN
  4. ZYRTEC [Concomitant]
     Active Substance: CETIRIZINE HYDROCHLORIDE
  5. SINGULAIR [Concomitant]
     Active Substance: MONTELUKAST SODIUM
     Dosage: UNK
  6. CARVEDILOL [Concomitant]
     Active Substance: CARVEDILOL
  7. OMEPRAZOLE [Concomitant]
     Active Substance: OMEPRAZOLE
  8. BACLOFEN [Concomitant]
     Active Substance: BACLOFEN
  9. ACETAZOLAMIDE [Concomitant]
     Active Substance: ACETAZOLAMIDE
  10. PREGABALIN [Concomitant]
     Active Substance: PREGABALIN
     Dosage: UNK
  11. CELECOXIB [Concomitant]
     Active Substance: CELECOXIB

REACTIONS (5)
  - Multiple sclerosis relapse [Unknown]
  - Fatigue [Unknown]
  - Ataxia [Unknown]
  - Balance disorder [Unknown]
  - Asthenia [Unknown]
